FAERS Safety Report 16981553 (Version 4)
Quarter: 2021Q1

REPORT INFORMATION
  Report Type: Spontaneous
  Country: US (occurrence: US)
  Receive Date: 20191101
  Receipt Date: 20210120
  Transmission Date: 20210419
  Serious: Yes (Hospitalization)
  Sender: FDA-Public Use
  Company Number: US-CELLTRION INC.-2019US023432

PATIENT

DRUGS (4)
  1. INFLECTRA [Suspect]
     Active Substance: INFLIXIMAB-DYYB
     Indication: CRONKHITE-CANADA SYNDROME
     Dosage: 10 MG/KG, Q4WEEKS
     Route: 065
  2. INFLECTRA [Suspect]
     Active Substance: INFLIXIMAB-DYYB
     Dosage: 600 MG (6 VIALS, EACH VIAL IS A 100 MG VIAL)
     Route: 065
  3. INFLECTRA [Suspect]
     Active Substance: INFLIXIMAB-DYYB
     Dosage: 500 MG (10MG/KG)
     Route: 065
     Dates: start: 2019, end: 2020
  4. INFLECTRA [Suspect]
     Active Substance: INFLIXIMAB-DYYB
     Dosage: 500 MG (5 VIALS, EACH VIAL IS A 100 MG VIAL)
     Route: 065

REACTIONS (5)
  - Weight increased [Recovered/Resolved]
  - Off label use [Unknown]
  - Shoulder arthroplasty [Recovered/Resolved]
  - Weight decreased [Recovered/Resolved]
  - Complications of limb reattachment surgery [Recovered/Resolved]

NARRATIVE: CASE EVENT DATE: 202003
